FAERS Safety Report 16644424 (Version 1)
Quarter: 2019Q3

REPORT INFORMATION
  Report Type: Spontaneous
  Country: US (occurrence: US)
  Receive Date: 20190729
  Receipt Date: 20190729
  Transmission Date: 20191004
  Serious: Yes (Hospitalization, Other)
  Sender: FDA-Public Use
  Company Number: US-CIPLA LTD.-2019US01118

PATIENT

DRUGS (7)
  1. ZONISAMIDE. [Suspect]
     Active Substance: ZONISAMIDE
     Indication: EPILEPSY
     Dosage: 100 MILLIGRAM, UNK
     Route: 048
     Dates: start: 20161118
  2. TYLENOL ADVIL [Concomitant]
     Indication: PAIN
     Dosage: UNK, PRN (AS NEEDED), USING SINCE 40 YEARS
     Route: 065
  3. ZONISAMIDE. [Suspect]
     Active Substance: ZONISAMIDE
     Dosage: 200 MILLIGRAM, UNK
     Route: 048
     Dates: start: 20161125, end: 20161127
  4. LAMICTAL [Concomitant]
     Active Substance: LAMOTRIGINE
     Indication: EPILEPSY
     Dosage: 300 MILLIGRAM, BID, USING SINCE 7 YEARS
     Route: 065
  5. CONCERTA [Concomitant]
     Active Substance: METHYLPHENIDATE HYDROCHLORIDE
     Indication: ATTENTION DEFICIT/HYPERACTIVITY DISORDER
     Dosage: 54 MILLIGRAM, MOST DAYS, NOT DAILY
     Route: 065
     Dates: start: 2015
  6. KEPPRA [Concomitant]
     Active Substance: LEVETIRACETAM
     Indication: EPILEPSY
     Dosage: 1125 MILLIGRAM, BID, USING SINCE 2 YEARS
     Route: 065
  7. CLONAZEPAM. [Concomitant]
     Active Substance: CLONAZEPAM
     Indication: EPILEPSY
     Dosage: 1 MILLIGRAM, PRN (AS NEEDED DURING SEIZURE ATTACK)
     Route: 065
     Dates: start: 2011

REACTIONS (2)
  - Neuropathy peripheral [Unknown]
  - Stevens-Johnson syndrome [Recovering/Resolving]

NARRATIVE: CASE EVENT DATE: 20161127
